FAERS Safety Report 11030948 (Version 1)
Quarter: 2015Q2

REPORT INFORMATION
  Report Type: Spontaneous
  Country: US (occurrence: None)
  Receive Date: 20150414
  Receipt Date: 20150414
  Transmission Date: 20150821
  Serious: No
  Sender: FDA-Public Use
  Company Number: None

PATIENT
  Age: 32 Year
  Sex: Female
  Weight: 71.22 kg

DRUGS (1)
  1. BUPROPION [Suspect]
     Active Substance: BUPROPION
     Indication: DEPRESSION
     Dosage: 1 TABLET
     Route: 048
     Dates: start: 20150320, end: 20150404

REACTIONS (8)
  - Muscle tightness [None]
  - Oropharyngeal pain [None]
  - Ulcer [None]
  - Swollen tongue [None]
  - Pharyngeal oedema [None]
  - Night sweats [None]
  - Type IV hypersensitivity reaction [None]
  - Dry mouth [None]

NARRATIVE: CASE EVENT DATE: 20150404
